FAERS Safety Report 17409990 (Version 2)
Quarter: 2020Q1

REPORT INFORMATION
  Report Type: Spontaneous
  Country: JP (occurrence: JP)
  Receive Date: 20200212
  Receipt Date: 20200302
  Transmission Date: 20200409
  Serious: Yes (Other)
  Sender: FDA-Public Use
  Company Number: JP-PFIZER INC-2020059370

PATIENT
  Age: 54 Year
  Sex: Male
  Weight: 64 kg

DRUGS (7)
  1. EFFEXOR [Suspect]
     Active Substance: VENLAFAXINE HYDROCHLORIDE
     Indication: DEPRESSION
     Dosage: 37.5 MG, DAILY
     Route: 048
     Dates: start: 20200118, end: 20200120
  2. CERCINE [Concomitant]
     Active Substance: DIAZEPAM
     Indication: ALCOHOL WITHDRAWAL SYNDROME
     Dosage: 5 MG, 1X/DAY
     Route: 048
     Dates: start: 20200106, end: 20200120
  3. OLANZAPINE OD [Concomitant]
     Active Substance: OLANZAPINE
     Indication: HALLUCINATION
     Dosage: 10 MG, 1X/DAY
     Route: 048
     Dates: start: 20200107
  4. AMLODIPINE [Concomitant]
     Active Substance: AMLODIPINE BESYLATE
     Indication: HYPERTENSION
     Dosage: 5 MG, 1X/DAY
     Route: 048
     Dates: start: 20200107
  5. VALSARTAN. [Concomitant]
     Active Substance: VALSARTAN
     Indication: HYPERTENSION
     Dosage: 80 MG, 1X/DAY
     Route: 048
     Dates: start: 20200107
  6. CYANAMIDE [Concomitant]
     Active Substance: CYANAMIDE
     Indication: ALCOHOLISM
     Dosage: 5 ML, 1X/DAY
     Route: 048
     Dates: start: 20200118
  7. DIAZEPAM. [Concomitant]
     Active Substance: DIAZEPAM
     Indication: ALCOHOL WITHDRAWAL SYNDROME
     Dosage: 2 MG, 3X/DAY
     Route: 048
     Dates: start: 20200106

REACTIONS (1)
  - Bipolar II disorder [Recovered/Resolved]

NARRATIVE: CASE EVENT DATE: 20200120
